FAERS Safety Report 6526440-2 (Version None)
Quarter: 2010Q1

REPORT INFORMATION
  Report Type: 
  Country: None (occurrence: None)
  Receive Date: 20100105
  Receipt Date: 20091222
  Transmission Date: 20100710
  Serious: No
  Sender: FDA-Public Use
  Company Number: US-JNJFOC-20091206730

PATIENT
  Sex: Female
  Weight: 92.99 kg

DRUGS (2)
  1. DURAGESIC-100 [Suspect]
     Indication: PNEUMONECTOMY
     Route: 062
  2. DURAGESIC-100 [Suspect]
     Indication: ARTHRITIS
     Route: 062

REACTIONS (3)
  - DRUG DISPENSING ERROR [None]
  - EXPIRED DRUG ADMINISTERED [None]
  - INADEQUATE ANALGESIA [None]
